FAERS Safety Report 18341222 (Version 1)
Quarter: 2020Q4

REPORT INFORMATION
  Report Type: Spontaneous
  Country: US (occurrence: US)
  Receive Date: 20201003
  Receipt Date: 20201003
  Transmission Date: 20210113
  Serious: No
  Sender: FDA-Public Use
  Company Number: US-LUPIN PHARMACEUTICALS INC.-2020-05046

PATIENT
  Age: 8 Decade
  Sex: Male

DRUGS (6)
  1. BETAMETHASONE. [Suspect]
     Active Substance: BETAMETHASONE
     Indication: PRURITUS
     Dosage: UNK (CREAM)
     Route: 061
  2. PREDNISONE. [Suspect]
     Active Substance: PREDNISONE
     Indication: PRURITUS
     Dosage: 5 MILLIGRAM, QD
     Route: 065
  3. METHOTREXATE. [Concomitant]
     Active Substance: METHOTREXATE
     Indication: PRURITUS
     Dosage: UNK
     Route: 065
  4. MOMETASONE [Suspect]
     Active Substance: MOMETASONE
     Indication: PRURITUS
     Dosage: UNK
     Route: 061
  5. CLOBETASOL PROPIONATE OINTMENT [Suspect]
     Active Substance: CLOBETASOL PROPIONATE
     Indication: PRURITUS
     Dosage: UNK (OINTMENT)
     Route: 061
  6. MIRTAZAPINE. [Suspect]
     Active Substance: MIRTAZAPINE
     Indication: PRURITUS
     Dosage: 15 MILLIGRAM
     Route: 065

REACTIONS (1)
  - Treatment failure [Unknown]
